FAERS Safety Report 9000692 (Version 2)
Quarter: 2013Q1

REPORT INFORMATION
  Report Type: Report from Study
  Country: US (occurrence: US)
  Receive Date: 20130107
  Receipt Date: 20130116
  Transmission Date: 20140127
  Serious: No
  Sender: FDA-Public Use
  Company Number: US-VERTEX PHARMACEUTICALS INC.-2013-000176

PATIENT
  Age: 57 Year
  Sex: Male
  Weight: 100 kg

DRUGS (7)
  1. VX-950 (TELAPREVIR) [Suspect]
     Indication: HEPATITIS C
     Dosage: 750 MG, TID
     Route: 048
     Dates: start: 20121229
  2. COPEGUS [Suspect]
     Indication: HEPATITIS C
     Dosage: 600 MG, BID
     Dates: start: 20121228
  3. PEGASYS [Suspect]
     Indication: HEPATITIS C
     Dosage: 180 ?G, QW
     Dates: start: 20121228
  4. GI COCKTAIL [Concomitant]
  5. BENADRYL                           /00000402/ [Concomitant]
  6. LACTULOSE [Concomitant]
  7. ZANTAC [Concomitant]

REACTIONS (7)
  - Tremor [Not Recovered/Not Resolved]
  - Pyrexia [Not Recovered/Not Resolved]
  - Abdominal pain upper [Not Recovered/Not Resolved]
  - Myalgia [Not Recovered/Not Resolved]
  - Rash generalised [Recovered/Resolved]
  - Vomiting [Not Recovered/Not Resolved]
  - Pruritus [Unknown]
